FAERS Safety Report 24240305 (Version 1)
Quarter: 2024Q3

REPORT INFORMATION
  Report Type: Spontaneous
  Country: BR (occurrence: BR)
  Receive Date: 20240822
  Receipt Date: 20240822
  Transmission Date: 20241016
  Serious: Yes (Other)
  Sender: NOVARTIS
  Company Number: BR-002147023-NVSC2024BR169671

PATIENT
  Age: 72 Year
  Sex: Male

DRUGS (1)
  1. AMLODIPINE\VALSARTAN [Suspect]
     Active Substance: AMLODIPINE\VALSARTAN
     Indication: Product used for unknown indication
     Dosage: UNK (320MG PLUS 5MG WITH COATED  TABLET  CONTAIN  ALUMINIUM/ ALUMINIUM  BLISTER X 28)
     Route: 065

REACTIONS (6)
  - Biopsy [Unknown]
  - Blood pressure decreased [Unknown]
  - Malaise [Recovered/Resolved]
  - Headache [Unknown]
  - Dizziness [Unknown]
  - Blood pressure abnormal [Unknown]

NARRATIVE: CASE EVENT DATE: 20240815
